FAERS Safety Report 6417419-X (Version None)
Quarter: 2009Q4

REPORT INFORMATION
  Report Type: 
  Country: None (occurrence: None)
  Receive Date: 20091028
  Receipt Date: 20091020
  Transmission Date: 20100525
  Serious: Yes (Hospitalization, Other)
  Sender: FDA-Public Use
  Company Number: US-BAYER-200915182BCC

PATIENT
  Age: 60 Year
  Sex: Male
  Weight: 73 kg

DRUGS (3)
  1. ASPIRIN [Suspect]
     Indication: ISCHAEMIC HEART DISEASE PROPHYLAXIS
     Dosage: TOTAL DAILY DOSE: 81 MG  UNIT DOSE: 81 MG
     Route: 048
     Dates: start: 20090601
  2. SLOW RELEASE IRON [Concomitant]
     Route: 065
  3. CENTRUM SENIOR [Concomitant]
     Route: 065

REACTIONS (5)
  - GASTRIC CANCER [None]
  - GASTRIC HAEMORRHAGE [None]
  - GINGIVAL BLEEDING [None]
  - HAEMATEMESIS [None]
  - HAEMATOCHEZIA [None]
